FAERS Safety Report 7079377-7 (Version None)
Quarter: 2010Q4

REPORT INFORMATION
  Report Type: 
  Country: None (occurrence: None)
  Receive Date: 20101102
  Receipt Date: 20101025
  Transmission Date: 20110411
  Serious: Yes (Hospitalization)
  Sender: FDA-Public Use
  Company Number: GB-TEVA-227163ISR

PATIENT
  Sex: Male
  Weight: 87 kg

DRUGS (13)
  1. PREDNISOLONE [Suspect]
     Indication: PROSTATE CANCER METASTATIC
     Route: 048
     Dates: start: 20081104, end: 20090115
  2. ABIRATERONE ACETATE OR PLACEBO [Suspect]
     Indication: PROSTATE CANCER METASTATIC
     Route: 048
     Dates: start: 20081104, end: 20090115
  3. GABAPENTIN [Concomitant]
     Indication: CANCER PAIN
     Route: 048
     Dates: start: 20060201
  4. FLURBIPROFEN [Concomitant]
     Indication: CANCER PAIN
     Route: 048
     Dates: start: 20080301
  5. OMEPRAZOLE [Concomitant]
     Indication: GASTROOESOPHAGEAL REFLUX DISEASE
     Route: 048
     Dates: start: 20080301
  6. PANADEINE CO [Concomitant]
     Indication: CANCER PAIN
     Dosage: 30/500
     Route: 048
     Dates: start: 20060201
  7. MORPHINE SULFATE [Concomitant]
     Indication: CANCER PAIN
     Route: 048
     Dates: start: 20081230
  8. MORPHINE SULFATE [Concomitant]
     Dates: start: 20090202
  9. NULYTELY [Concomitant]
     Indication: CONSTIPATION PROPHYLAXIS
     Route: 048
     Dates: start: 20081230
  10. GOSERELIN [Concomitant]
     Indication: HORMONE THERAPY
     Dates: start: 20050131
  11. GOSERELIN [Concomitant]
     Dates: start: 20081104
  12. MORPHINE SULFATE [Concomitant]
     Route: 048
     Dates: start: 20081104
  13. DOMPERIDONE [Concomitant]
     Indication: NAUSEA
     Route: 048
     Dates: start: 20081216

REACTIONS (2)
  - PNEUMONIA [None]
  - PULMONARY EMBOLISM [None]
